FAERS Safety Report 13776497 (Version 1)
Quarter: 2017Q3

REPORT INFORMATION
  Report Type: Spontaneous
  Country: AU (occurrence: AU)
  Receive Date: 20170721
  Receipt Date: 20170721
  Transmission Date: 20171127
  Serious: Yes (Hospitalization)
  Sender: FDA-Public Use
  Company Number: AU-PFIZER INC-2819469

PATIENT
  Age: 65 Year
  Sex: Female

DRUGS (1)
  1. PHENYTOIN. [Suspect]
     Active Substance: PHENYTOIN
     Indication: ALCOHOLIC SEIZURE
     Dosage: 100 MG, FREQ:1 DAY; INTERVAL: 1

REACTIONS (5)
  - Fall [Unknown]
  - Clavicle fracture [Unknown]
  - Device dislocation [Unknown]
  - Gamma-glutamyltransferase increased [Unknown]
  - Nystagmus [Unknown]
